FAERS Safety Report 4537775-7 (Version None)
Quarter: 2004Q4

REPORT INFORMATION
  Report Type: 
  Country: None (occurrence: None)
  Receive Date: 20041224
  Receipt Date: 20041214
  Transmission Date: 20050328
  Serious: Yes (Hospitalization)
  Sender: FDA-Public Use
  Company Number: US-MERCK-0412USA01742

PATIENT
  Age: 72 Year
  Sex: Female

DRUGS (2)
  1. VIOXX [Suspect]
     Indication: ARTHRITIS
     Route: 048
     Dates: start: 20000101, end: 20020101
  2. VASERETIC [Concomitant]
     Route: 048

REACTIONS (4)
  - ARTHRALGIA [None]
  - HAEMORRHAGE [None]
  - HEART RATE IRREGULAR [None]
  - OEDEMA PERIPHERAL [None]
